FAERS Safety Report 24209194 (Version 2)
Quarter: 2024Q4

REPORT INFORMATION
  Report Type: Report from Study
  Country: BR (occurrence: BR)
  Receive Date: 20240814
  Receipt Date: 20241016
  Transmission Date: 20250115
  Serious: Yes (Other)
  Sender: NOVARTIS
  Company Number: BR-002147023-NVSC2024BR163544

PATIENT
  Sex: Female

DRUGS (1)
  1. COSENTYX [Suspect]
     Active Substance: SECUKINUMAB
     Indication: Product used for unknown indication
     Dosage: UNK
     Route: 065

REACTIONS (7)
  - Crohn^s disease [Unknown]
  - Leukopenia [Unknown]
  - Decreased immune responsiveness [Unknown]
  - Eating disorder [Unknown]
  - Abdominal pain [Unknown]
  - Swelling [Unknown]
  - General physical health deterioration [Unknown]
